FAERS Safety Report 18777842 (Version 1)
Quarter: 2021Q1

REPORT INFORMATION
  Report Type: Spontaneous
  Country: US (occurrence: US)
  Receive Date: 20210122
  Receipt Date: 20210122
  Transmission Date: 20210419
  Serious: No
  Sender: FDA-Public Use
  Company Number: 2020SGN03865

PATIENT
  Sex: Female

DRUGS (1)
  1. TUKYSA [Suspect]
     Active Substance: TUCATINIB
     Indication: BREAST CANCER FEMALE
     Dosage: 150 MG, UNK
     Route: 048

REACTIONS (15)
  - Swelling [Unknown]
  - Pain [Unknown]
  - Tumour pain [Unknown]
  - Dyspnoea [Unknown]
  - Loss of personal independence in daily activities [Unknown]
  - Rhinorrhoea [Unknown]
  - Head discomfort [Unknown]
  - Abdominal distension [Unknown]
  - Back pain [Unknown]
  - Fatigue [Unknown]
  - Productive cough [Unknown]
  - Influenza like illness [Unknown]
  - Cough [Unknown]
  - Headache [Unknown]
  - Chest pain [Unknown]
